FAERS Safety Report 9284184 (Version 2)
Quarter: 2013Q2

REPORT INFORMATION
  Report Type: Spontaneous
  Country: JP (occurrence: JP)
  Receive Date: 20130510
  Receipt Date: 20130520
  Transmission Date: 20140414
  Serious: Yes (Life-Threatening, Other)
  Sender: FDA-Public Use
  Company Number: JP-CUBIST PHARMACEUTICALS, INC.-2013CBST000385

PATIENT
  Sex: 0

DRUGS (9)
  1. CUBICIN [Suspect]
     Indication: THROMBOPHLEBITIS
     Dosage: 5.5 MG/KG, QD
     Route: 041
     Dates: start: 20130426, end: 20130430
  2. CUBICIN [Suspect]
     Indication: OFF LABEL USE
     Dosage: 9.5 MG, QD
     Route: 041
     Dates: start: 20130502, end: 20130504
  3. FOSMICIN-S [Suspect]
     Indication: THROMBOPHLEBITIS
     Dosage: 2 G, QD
     Route: 041
     Dates: start: 20130503, end: 20130504
  4. NEO-MINOPHAGEN C [Suspect]
     Indication: HEPATIC FAILURE
     Dosage: 20 ML, QD
     Route: 042
     Dates: start: 20130201
  5. MERCAZOLE [Suspect]
     Indication: THYROTOXIC CRISIS
     Dosage: 30 MG, TID
     Route: 042
     Dates: start: 20130221, end: 20130221
  6. MERCAZOLE [Suspect]
     Dosage: 20 MG, TID
     Route: 042
     Dates: start: 20130222, end: 20130412
  7. MERCAZOLE [Suspect]
     Dosage: 20 MG, TID
     Route: 042
     Dates: start: 20130412, end: 20130417
  8. MERCAZOLE [Suspect]
     Dosage: 10 MG, TID
     Route: 042
     Dates: start: 20130418, end: 20130507
  9. MERCAZOLE [Suspect]
     Dosage: 10 MG, TID
     Route: 042
     Dates: start: 20130508, end: 20130509

REACTIONS (6)
  - Lactic acidosis [Not Recovered/Not Resolved]
  - Hepatic failure [Not Recovered/Not Resolved]
  - Hypoglycaemia [Unknown]
  - Altered state of consciousness [Unknown]
  - Circulatory collapse [Unknown]
  - Overdose [Unknown]
